FAERS Safety Report 6711701-4 (Version None)
Quarter: 2010Q2

REPORT INFORMATION
  Report Type: 
  Country: None (occurrence: None)
  Receive Date: 20100505
  Receipt Date: 20100430
  Transmission Date: 20101027
  Serious: Yes (Hospitalization)
  Sender: FDA-Public Use
  Company Number: FR-RB-013045-09

PATIENT
  Age: 34 Year
  Sex: Male

DRUGS (2)
  1. SUBUTEX [Suspect]
     Dosage: DOSING INFORMATION UNKNOWN.
     Route: 060
  2. SUBUTEX [Suspect]
     Dosage: DODING INFORMATION UNKNOWN.
     Route: 058

REACTIONS (4)
  - ENTEROCOCCAL SEPSIS [None]
  - INCORRECT ROUTE OF DRUG ADMINISTRATION [None]
  - PENILE NECROSIS [None]
  - SUBSTANCE ABUSE [None]
